FAERS Safety Report 6120564-X (Version None)
Quarter: 2009Q1

REPORT INFORMATION
  Report Type: 
  Country: None (occurrence: None)
  Receive Date: 20090317
  Receipt Date: 20090310
  Transmission Date: 20090719
  Serious: Yes (Hospitalization)
  Sender: FDA-Public Use
  Company Number: ES-JNJFOC-20090201850

PATIENT
  Age: 51 Year
  Sex: Male

DRUGS (3)
  1. REMICADE [Suspect]
     Indication: COLITIS ULCERATIVE
     Dosage: 2 INFUSIONS ADMINISTERED
     Route: 042
  2. MERCAPTOPURINE [Concomitant]
  3. DACORTIN [Concomitant]
     Dosage: DOSE ^20-40 MG^

REACTIONS (1)
  - TUBERCULOSIS [None]
